FAERS Safety Report 21766697 (Version 3)
Quarter: 2023Q1

REPORT INFORMATION
  Report Type: Spontaneous
  Country: US (occurrence: US)
  Receive Date: 20221222
  Receipt Date: 20230104
  Transmission Date: 20230417
  Serious: Yes (Other)
  Sender: FDA-Public Use
  Company Number: US-PFIZER INC-202201388763

PATIENT
  Age: 39 Year
  Sex: Male
  Weight: 69.85 kg

DRUGS (1)
  1. PAXLOVID [Suspect]
     Active Substance: NIRMATRELVIR\RITONAVIR
     Indication: COVID-19 treatment
     Dosage: [PF-07321332 300 MG]/[RITONAVIR 100 MG]; 2X/DAY
     Route: 048
     Dates: start: 20221215, end: 20221217

REACTIONS (9)
  - Hallucination [Recovering/Resolving]
  - Post-traumatic stress disorder [Recovering/Resolving]
  - Condition aggravated [Recovering/Resolving]
  - Intentional self-injury [Recovering/Resolving]
  - Off label use [Unknown]
  - Malaise [Recovering/Resolving]
  - Flashback [Unknown]
  - Cough [Unknown]
  - Rhinalgia [Not Recovered/Not Resolved]

NARRATIVE: CASE EVENT DATE: 20221216
